FAERS Safety Report 24148189 (Version 1)
Quarter: 2024Q3

REPORT INFORMATION
  Report Type: Report from Study
  Country: PR (occurrence: PR)
  Receive Date: 20240729
  Receipt Date: 20240729
  Transmission Date: 20241017
  Serious: Yes (Death, Other)
  Sender: PFIZER
  Company Number: PR-PFIZER INC-202300261686

PATIENT
  Age: 45 Year
  Sex: Female

DRUGS (10)
  1. IBRANCE [Suspect]
     Active Substance: PALBOCICLIB
     Dosage: 125 MG CAPSULE PO DAILY FOR 21 DAYS
     Route: 048
     Dates: start: 20230124, end: 202312
  2. IBRANCE [Suspect]
     Active Substance: PALBOCICLIB
     Dosage: 1 DAILY FOR 21 DAYS
     Dates: start: 20230724
  3. IBRANCE [Suspect]
     Active Substance: PALBOCICLIB
     Dosage: DAILY 21 DAYS ON + 7 DAYS OFF
     Route: 048
     Dates: start: 20230724
  4. ANASTROZOLE [Concomitant]
     Active Substance: ANASTROZOLE
     Dosage: UNK
  5. FAMOTIDINE [Concomitant]
     Active Substance: FAMOTIDINE
     Dosage: UNK
  6. FULVESTRANT [Concomitant]
     Active Substance: FULVESTRANT
     Dosage: UNK
  7. GABAPENTIN [Concomitant]
     Active Substance: GABAPENTIN
     Dosage: UNK
  8. LOSARTAN [Concomitant]
     Active Substance: LOSARTAN
     Dosage: UNK
  9. NABUMETONE [Concomitant]
     Active Substance: NABUMETONE
     Dosage: UNK
  10. ZOLEDRONIC ACID [Concomitant]
     Active Substance: ZOLEDRONIC ACID
     Dosage: UNK

REACTIONS (10)
  - Death [Fatal]
  - Fatigue [Recovering/Resolving]
  - Sciatic nerve injury [Recovering/Resolving]
  - Sciatica [Recovering/Resolving]
  - Pyrexia [Recovering/Resolving]
  - Musculoskeletal stiffness [Recovering/Resolving]
  - Musculoskeletal chest pain [Recovering/Resolving]
  - Alopecia [Not Recovered/Not Resolved]
  - Decreased appetite [Not Recovered/Not Resolved]
  - Cancer pain [Not Recovered/Not Resolved]

NARRATIVE: CASE EVENT DATE: 20231228
